FAERS Safety Report 18764919 (Version 5)
Quarter: 2022Q3

REPORT INFORMATION
  Report Type: Spontaneous
  Country: CZ (occurrence: CZ)
  Receive Date: 20210121
  Receipt Date: 20220816
  Transmission Date: 20221027
  Serious: Yes (Hospitalization, Other)
  Sender: FDA-Public Use
  Company Number: CZ-PFIZER INC-2021012262

PATIENT
  Age: 72 Year
  Sex: Female

DRUGS (11)
  1. IBUPROFEN [Suspect]
     Active Substance: IBUPROFEN
     Indication: Arthralgia
     Dosage: 400 MILLIGRAM
     Route: 065
  2. RAMIPRIL [Suspect]
     Active Substance: RAMIPRIL
     Indication: Hypertension
     Dosage: 10 MILLIGRAM, ONCE A DAY
     Route: 048
  3. MELOXICAM [Suspect]
     Active Substance: MELOXICAM
     Indication: Spinal pain
     Dosage: 15 MILLIGRAM
     Route: 048
  4. MELOXICAM [Suspect]
     Active Substance: MELOXICAM
     Indication: Arthralgia
  5. MOXONIDINE [Suspect]
     Active Substance: MOXONIDINE
     Indication: Hypertension
     Dosage: 0.9 MILLIGRAM, ONCE A DAY (0.3 MG, 3X/DAY)
     Route: 048
  6. MOXONIDINE [Suspect]
     Active Substance: MOXONIDINE
     Dosage: 0.3 MILLIGRAM, ONCE A DAY (0.3 MILLIGRAM DAILY)
     Route: 048
  7. DIAZEPAM [Concomitant]
     Active Substance: DIAZEPAM
     Indication: Anxiety
     Dosage: UNK
     Route: 065
  8. CAPTOPRIL [Concomitant]
     Active Substance: CAPTOPRIL
     Indication: Hypertensive crisis
     Dosage: UNK
     Route: 065
  9. IBUPROFEN [Concomitant]
     Active Substance: IBUPROFEN
     Indication: Hypertensive crisis
     Dosage: 400 MILLIGRAM
     Route: 065
  10. NITRENDIPINE [Concomitant]
     Active Substance: NITRENDIPINE
     Indication: Hypertensive crisis
     Dosage: UNK
     Route: 065
  11. ESCITALOPRAM [Concomitant]
     Active Substance: ESCITALOPRAM OXALATE
     Indication: Hypertensive crisis
     Dosage: UNK
     Route: 065

REACTIONS (10)
  - Hypertensive crisis [Recovered/Resolved]
  - Therapeutic product effect incomplete [Unknown]
  - Blood pressure inadequately controlled [Recovered/Resolved]
  - Anxiety [Recovered/Resolved]
  - Flushing [Recovered/Resolved]
  - Dizziness [Recovered/Resolved]
  - Palpitations [Recovered/Resolved]
  - Renal failure [Recovered/Resolved]
  - Head discomfort [Recovered/Resolved]
  - Fatigue [Recovered/Resolved]

NARRATIVE: CASE EVENT DATE: 20200401
